FAERS Safety Report 5467872-3 (Version None)
Quarter: 2007Q3

REPORT INFORMATION
  Report Type: 
  Country: None (occurrence: None)
  Receive Date: 20070921
  Receipt Date: 20070918
  Transmission Date: 20080115
  Serious: Yes (Death, Life-Threatening)
  Sender: FDA-Public Use
  Company Number: 2007-163853-NL

PATIENT
  Age: 76 Year
  Sex: Male

DRUGS (10)
  1. VECURONIUM BROMIDE [Suspect]
     Indication: INTUBATION
     Dosage: 4 MG
     Route: 042
     Dates: start: 20070830, end: 20070830
  2. VECURONIUM BROMIDE [Suspect]
     Indication: MUSCLE RELAXANT THERAPY
     Dosage: 4 MG
     Route: 042
     Dates: start: 20070830, end: 20070830
  3. KETAMINE HYDROCHLORIDE [Suspect]
     Indication: INTUBATION
     Route: 042
     Dates: start: 20070830, end: 20070830
  4. FUROSEMIDE [Concomitant]
  5. KEBERA S [Concomitant]
  6. SULPERAZON [Concomitant]
  7. DOPAMINE HYDROCHLORIDE [Concomitant]
  8. ALBUMIN (HUMAN) [Concomitant]
  9. ANTITHROMBIN III [Concomitant]
  10. NAFAMOSTATE MESILATE [Concomitant]

REACTIONS (3)
  - CARDIO-RESPIRATORY ARREST [None]
  - NO THERAPEUTIC RESPONSE [None]
  - TRISMUS [None]
